FAERS Safety Report 7904441-7 (Version None)
Quarter: 2011Q4

REPORT INFORMATION
  Report Type: 
  Country: None (occurrence: None)
  Receive Date: 20111109
  Receipt Date: 20111107
  Transmission Date: 20120403
  Serious: Yes (Hospitalization, Other)
  Sender: FDA-Public Use
  Company Number: US-TEVA-308275USA

PATIENT
  Age: 62 Year
  Sex: Male

DRUGS (2)
  1. VALPROIC ACID [Suspect]
     Indication: AFFECTIVE DISORDER
     Dosage: OVER 30 MINUTES
     Route: 041
  2. VALPROIC ACID [Suspect]
     Route: 048

REACTIONS (3)
  - DERMATITIS BULLOUS [None]
  - COMPARTMENT SYNDROME [None]
  - INFUSION SITE EXTRAVASATION [None]
